FAERS Safety Report 8578411-2 (Version None)
Quarter: 2012Q3

REPORT INFORMATION
  Report Type: 
  Country: None (occurrence: None)
  Receive Date: 20120808
  Receipt Date: 20120730
  Transmission Date: 20120928
  Serious: Yes (Other)
  Sender: FDA-Public Use
  Company Number: US-RB-043075-12

PATIENT
  Age: 49 Year
  Sex: Female

DRUGS (1)
  1. MUCINEX [Suspect]
     Indication: PULMONARY CONGESTION
     Route: 048
     Dates: start: 20040101, end: 20120729

REACTIONS (2)
  - INCORRECT DRUG ADMINISTRATION DURATION [None]
  - DRUG DEPENDENCE [None]
